FAERS Safety Report 6289123-2 (Version None)
Quarter: 2009Q3

REPORT INFORMATION
  Report Type: 
  Country: None (occurrence: None)
  Receive Date: 20090729
  Receipt Date: 20090722
  Transmission Date: 20100115
  Serious: Yes (Life-Threatening)
  Sender: FDA-Public Use
  Company Number: JP-ASTRAZENECA-2009SE02233

PATIENT
  Age: 26968 Day
  Sex: Male
  Weight: 40 kg

DRUGS (1)
  1. CRESTOR [Suspect]
     Indication: HYPERCHOLESTEROLAEMIA
     Route: 048
     Dates: start: 20090319, end: 20090507

REACTIONS (1)
  - HEPATIC FUNCTION ABNORMAL [None]
